FAERS Safety Report 23422309 (Version 1)
Quarter: 2024Q1

REPORT INFORMATION
  Report Type: Spontaneous
  Country: US (occurrence: US)
  Receive Date: 20240119
  Receipt Date: 20240119
  Transmission Date: 20240410
  Serious: Yes (Other)
  Sender: FDA-Public Use
  Company Number: US-UCBSA-2024001905

PATIENT
  Age: 63 Year
  Sex: Male

DRUGS (1)
  1. CIMZIA [Suspect]
     Active Substance: CERTOLIZUMAB PEGOL
     Indication: Product used for unknown indication
     Dosage: 400 MILLIGRAM OTHER
     Route: 058
     Dates: start: 202104, end: 202109

REACTIONS (7)
  - Nephrolithiasis [Unknown]
  - Fatigue [Unknown]
  - Night sweats [Unknown]
  - Rash [Unknown]
  - Decreased appetite [Unknown]
  - Weight decreased [Unknown]
  - Pulmonary mass [Unknown]

NARRATIVE: CASE EVENT DATE: 20210501
